FAERS Safety Report 24023730 (Version 4)
Quarter: 2024Q3

REPORT INFORMATION
  Report Type: Report from Study
  Country: CN (occurrence: CN)
  Receive Date: 20240627
  Receipt Date: 20240710
  Transmission Date: 20241016
  Serious: No
  Sender: ROCHE
  Company Number: CN-ROCHE-3226270

PATIENT
  Age: 64 Year
  Sex: Female
  Weight: 57.0 kg

DRUGS (16)
  1. ALECTINIB [Suspect]
     Active Substance: ALECTINIB
     Indication: Non-small cell lung cancer metastatic
     Route: 048
     Dates: start: 20211202
  2. ALECTINIB [Suspect]
     Active Substance: ALECTINIB
     Route: 048
     Dates: start: 20210915
  3. UBIDECARENONE [Concomitant]
     Active Substance: UBIDECARENONE
     Route: 048
     Dates: start: 20211004
  4. PHOSPHOLIPID [Concomitant]
     Active Substance: PHOSPHOLIPID
     Route: 048
     Dates: start: 20211024, end: 20220610
  5. ELEMENE [Concomitant]
     Route: 042
     Dates: start: 20220311, end: 20220311
  6. ELEMENE [Concomitant]
     Route: 042
     Dates: start: 20220411, end: 20220411
  7. ZOLEDRONIC ACID [Concomitant]
     Active Substance: ZOLEDRONIC ACID
     Route: 042
     Dates: start: 20230207, end: 20230207
  8. ZOLEDRONIC ACID [Concomitant]
     Active Substance: ZOLEDRONIC ACID
     Dosage: FREQUENCY TEXT:1
     Route: 042
     Dates: start: 20230303, end: 20230303
  9. ZOLEDRONIC ACID [Concomitant]
     Active Substance: ZOLEDRONIC ACID
     Route: 042
     Dates: start: 20230410, end: 20230411
  10. GLYCYRRHIZA [Concomitant]
     Active Substance: LICORICE
     Route: 048
     Dates: start: 20221024
  11. DISODIUM CANTHARIDINATE AND VITAMIN B6 [Concomitant]
     Route: 042
     Dates: start: 20230206, end: 20230206
  12. DISODIUM CANTHARIDINATE AND VITAMIN B6 [Concomitant]
     Route: 042
     Dates: start: 20230410, end: 20230410
  13. CETYLPYRIDINIUM CHLORIDE [Concomitant]
     Active Substance: CETYLPYRIDINIUM CHLORIDE
     Indication: COVID-19
     Route: 048
     Dates: start: 20221230, end: 20230120
  14. AMINOPHYLLINE\CHLORPHENIRAMINE MALEATE\METHOXYPHENAMINE HYDROCHLORIDE\ [Concomitant]
     Active Substance: AMINOPHYLLINE\CHLORPHENIRAMINE MALEATE\METHOXYPHENAMINE HYDROCHLORIDE\NOSCAPINE
     Indication: Cough
     Dosage: 2 CAPSULE
     Route: 048
     Dates: start: 20230303, end: 20230313
  15. COMPOUND DEXAMETHASONE ACETATE [Concomitant]
     Indication: Dermatitis
     Route: 062
     Dates: start: 20230321, end: 20230602
  16. ROXATIDINE ACETATE HYDROCHLORIDE [Concomitant]
     Active Substance: ROXATIDINE ACETATE HYDROCHLORIDE
     Route: 042
     Dates: start: 20230825, end: 20230825

REACTIONS (2)
  - White blood cell count decreased [Recovered/Resolved]
  - Neutrophil count decreased [Recovered/Resolved]

NARRATIVE: CASE EVENT DATE: 20220311
